FAERS Safety Report 5131248-9 (Version None)
Quarter: 2006Q4

REPORT INFORMATION
  Report Type: 
  Country: None (occurrence: None)
  Receive Date: 20061018
  Receipt Date: 20061018
  Transmission Date: 20070319
  Serious: Yes (Other)
  Sender: FDA-Public Use
  Company Number: None

PATIENT
  Age: 28 Year
  Sex: Female
  Weight: 108.8633 kg

DRUGS (3)
  1. RISPERDAL [Suspect]
     Indication: ANXIETY
     Dosage: 4MG  QD  PO
     Route: 048
     Dates: start: 20060520, end: 20060703
  2. RISPERDAL [Suspect]
     Indication: BIPOLAR DISORDER
     Dosage: 4MG  QD  PO
     Route: 048
     Dates: start: 20060520, end: 20060703
  3. PRENATAL MULTIVITAMIN [Concomitant]

REACTIONS (11)
  - ABORTION SPONTANEOUS [None]
  - AFFECT LABILITY [None]
  - ANAEMIA [None]
  - ANXIETY [None]
  - DEPRESSION [None]
  - DRUG EXPOSURE DURING PREGNANCY [None]
  - DRUG INEFFECTIVE [None]
  - IRRITABILITY [None]
  - POST ABORTION HAEMORRHAGE [None]
  - PREGNANCY [None]
  - TEARFULNESS [None]
